FAERS Safety Report 13532522 (Version 1)
Quarter: 2017Q2

REPORT INFORMATION
  Report Type: Spontaneous
  Country: LT (occurrence: LT)
  Receive Date: 20170510
  Receipt Date: 20170510
  Transmission Date: 20170830
  Serious: Yes (Other)
  Sender: FDA-Public Use
  Company Number: LT-GLAXOSMITHKLINE-LT2017GSK067889

PATIENT
  Sex: Female

DRUGS (2)
  1. CEFUROXIME. [Suspect]
     Active Substance: CEFUROXIME
     Indication: SINUSITIS
     Dosage: 250 MG, BID
     Route: 064
  2. AMPICILLIN [Suspect]
     Active Substance: AMPICILLIN
     Indication: PYREXIA
     Dosage: 1 G, QID
     Route: 064

REACTIONS (4)
  - Congenital cytomegalovirus infection [Unknown]
  - Intraventricular haemorrhage [Unknown]
  - Cerebral cyst [Unknown]
  - Foetal exposure during pregnancy [Unknown]
